FAERS Safety Report 22083488 (Version 1)
Quarter: 2023Q1

REPORT INFORMATION
  Report Type: Spontaneous
  Country: US (occurrence: None)
  Receive Date: 20230309
  Receipt Date: 20230309
  Transmission Date: 20230417
  Serious: Yes (Other)
  Sender: FDA-Public Use
  Company Number: None

PATIENT
  Age: 33 Year
  Sex: Female
  Weight: 72.9 kg

DRUGS (2)
  1. AMPHETAMINE [Suspect]
     Active Substance: AMPHETAMINE
     Indication: Attention deficit hyperactivity disorder
     Dosage: OTHER QUANTITY : 3 TABLET(S);?OTHER FREQUENCY : DAILY AS NEEDED;?
     Route: 048
     Dates: start: 20230220, end: 20230309
  2. Trintellix 20mg tab (taken once daily) [Concomitant]

REACTIONS (3)
  - Product substitution issue [None]
  - Drug ineffective [None]
  - Product formulation issue [None]
